FAERS Safety Report 4336239-3 (Version None)
Quarter: 2004Q2

REPORT INFORMATION
  Report Type: 
  Country: None (occurrence: None)
  Receive Date: 20040409
  Receipt Date: 20040317
  Transmission Date: 20050107
  Serious: Yes (Death)
  Sender: FDA-Public Use
  Company Number: JP_040202601

PATIENT
  Age: 62 Year
  Sex: Female
  Weight: 48 kg

DRUGS (9)
  1. GEMZAR [Suspect]
     Indication: NEOPLASM RECURRENCE
     Dosage: 600 MG/OTHER
     Dates: start: 20031031, end: 20031219
  2. GEMZAR [Suspect]
     Indication: OVARIAN CANCER
     Dosage: 600 MG/OTHER
     Dates: start: 20031031, end: 20031219
  3. TAXOTERE [Concomitant]
  4. DECADRON [Concomitant]
  5. LENDORM [Concomitant]
  6. FAMOTIDINE [Concomitant]
  7. LASIX [Concomitant]
  8. GLYBURIDE [Concomitant]
  9. BASEN (VOGLIBOSE) [Concomitant]

REACTIONS (7)
  - BLOOD PRESSURE DECREASED [None]
  - HEPATIC FAILURE [None]
  - HYPOPROTEINAEMIA [None]
  - MALIGNANT NEOPLASM PROGRESSION [None]
  - OVARIAN CANCER [None]
  - SEPSIS [None]
  - WHITE BLOOD CELL COUNT INCREASED [None]
